FAERS Safety Report 7814624-2 (Version None)
Quarter: 2011Q4

REPORT INFORMATION
  Report Type: 
  Country: None (occurrence: None)
  Receive Date: 20111014
  Receipt Date: 20111012
  Transmission Date: 20120403
  Serious: Yes (Death, Hospitalization)
  Sender: FDA-Public Use
  Company Number: KR-BAYER-2011-097123

PATIENT
  Age: 88 Year
  Sex: Male
  Weight: 59.4 kg

DRUGS (8)
  1. SCOPOLAMINE [Concomitant]
     Dosage: 10 MG, UNK
     Dates: start: 20110726
  2. VENITOL [Concomitant]
     Dosage: 500 MG, UNK
     Dates: start: 20110726, end: 20110822
  3. URSACOL [Concomitant]
     Indication: HEPATIC NEOPLASM MALIGNANT
     Dosage: 100 MG, UNK
     Dates: start: 20110726
  4. SPIRONOLACTONE [Concomitant]
     Dosage: 25 MG, UNK
     Dates: start: 20110726
  5. LEGALON [Concomitant]
     Indication: HEPATIC NEOPLASM MALIGNANT
     Dosage: 140 MG, UNK
     Dates: start: 20110726, end: 20110822
  6. PHAZYME [Concomitant]
     Indication: PROPHYLAXIS
     Dosage: 95 MG, UNK
     Dates: start: 20110726, end: 20110822
  7. SORAFENIB (RAF KINASE INHIBITOR) [Suspect]
     Indication: HEPATIC NEOPLASM MALIGNANT
     Dosage: 400 MG, DAILY
     Route: 048
     Dates: start: 20110730, end: 20110904
  8. MAGMIL [Concomitant]
     Dosage: 500 MG, UNK
     Dates: start: 20110726, end: 20110822

REACTIONS (2)
  - ACUTE PRERENAL FAILURE [None]
  - HEPATORENAL SYNDROME [None]
